FAERS Safety Report 6740204-6 (Version None)
Quarter: 2010Q2

REPORT INFORMATION
  Report Type: 
  Country: None (occurrence: None)
  Receive Date: 20100525
  Receipt Date: 20100518
  Transmission Date: 20101027
  Serious: Yes (Other)
  Sender: FDA-Public Use
  Company Number: A0860212A

PATIENT
  Sex: Female

DRUGS (10)
  1. FLOVENT [Suspect]
     Indication: ASTHMA
     Dosage: 2PUFF TWICE PER DAY
     Route: 055
  2. CATAPRES [Concomitant]
  3. DIOVAN [Concomitant]
  4. PRILOSEC [Concomitant]
  5. TEKTURNA [Concomitant]
  6. VITAMIN D [Concomitant]
  7. METROCREAM [Concomitant]
  8. TYLENOL (CAPLET) [Concomitant]
  9. CENTRUM SILVER [Concomitant]
  10. FISH OIL [Concomitant]

REACTIONS (6)
  - ADVERSE DRUG REACTION [None]
  - HAEMORRHAGE [None]
  - HEADACHE [None]
  - MYALGIA [None]
  - SINUS DISORDER [None]
  - SINUSITIS [None]
